FAERS Safety Report 15749493 (Version 1)
Quarter: 2018Q4

REPORT INFORMATION
  Report Type: Spontaneous
  Country: US (occurrence: US)
  Receive Date: 20181220
  Receipt Date: 20181220
  Transmission Date: 20190205
  Serious: Yes (Life-Threatening, Disabling, Other)
  Sender: FDA-Public Use
  Company Number: None

PATIENT
  Age: 56 Year
  Sex: Female
  Weight: 92.25 kg

DRUGS (1)
  1. COLCHICINE 0.6 MG CAPSULES [Suspect]
     Active Substance: COLCHICINE
     Indication: BEHCET^S SYNDROME
     Dosage: ?          QUANTITY:3 CAPSULE(S);??
     Route: 048

REACTIONS (13)
  - Influenza [None]
  - Neurological symptom [None]
  - Headache [None]
  - Nausea [None]
  - Hypoaesthesia [None]
  - Malaise [None]
  - Memory impairment [None]
  - Diarrhoea [None]
  - Toxicity to various agents [None]
  - Fatigue [None]
  - Arthralgia [None]
  - Abdominal discomfort [None]
  - Dyspnoea [None]

NARRATIVE: CASE EVENT DATE: 20181220
